FAERS Safety Report 25014146 (Version 2)
Quarter: 2025Q4

REPORT INFORMATION
  Report Type: Spontaneous
  Country: GB (occurrence: GB)
  Receive Date: 20250226
  Receipt Date: 20251203
  Transmission Date: 20260119
  Serious: Yes (Other)
  Sender: PFIZER
  Company Number: None

PATIENT
  Age: 43 Year
  Sex: Female

DRUGS (3)
  1. AZITHROMYCIN [Interacting]
     Active Substance: AZITHROMYCIN
     Indication: Bacterial infection
     Dosage: 500 MG, 1X/DAY
     Dates: start: 20250203, end: 20250204
  2. IVABRADINE [Interacting]
     Active Substance: IVABRADINE
     Indication: Postural orthostatic tachycardia syndrome
     Dosage: UNK
  3. LEVOTHYROXINE [Concomitant]
     Active Substance: LEVOTHYROXINE
     Indication: Hypothyroidism
     Dosage: UNK
     Dates: start: 2014

REACTIONS (3)
  - Drug interaction [Recovered/Resolved]
  - Blindness unilateral [Recovered/Resolved]
  - Dizziness [Recovered/Resolved]

NARRATIVE: CASE EVENT DATE: 20250204
